FAERS Safety Report 9807935 (Version 1)
Quarter: 2014Q1

REPORT INFORMATION
  Report Type: Spontaneous
  Country: US (occurrence: US)
  Receive Date: 20140110
  Receipt Date: 20140110
  Transmission Date: 20141002
  Serious: Yes (Other)
  Sender: FDA-Public Use
  Company Number: US-PFIZER INC-2014006572

PATIENT
  Sex: Female

DRUGS (1)
  1. EFFEXOR XR [Suspect]
     Dosage: UNK
     Dates: end: 20140106

REACTIONS (4)
  - Fluid retention [Unknown]
  - Blood glucose increased [Unknown]
  - Weight increased [Unknown]
  - Weight decreased [Unknown]
